FAERS Safety Report 19825274 (Version 1)
Quarter: 2021Q3

REPORT INFORMATION
  Report Type: Spontaneous
  Country: US (occurrence: US)
  Receive Date: 20210911
  Receipt Date: 20210911
  Transmission Date: 20211014
  Serious: No
  Sender: FDA-Public Use
  Company Number: None

PATIENT
  Sex: Female

DRUGS (20)
  1. MAGNESIUM [Concomitant]
     Active Substance: MAGNESIUM
  2. L?THEANINE [Concomitant]
     Active Substance: DIETARY SUPPLEMENT
  3. L?LYSINE [Concomitant]
     Active Substance: LYSINE
  4. MODIFIED CITRUS PECTIN [Concomitant]
  5. MSM [Concomitant]
     Active Substance: DIMETHYL SULFONE
  6. LORAZEPAM. [Concomitant]
     Active Substance: LORAZEPAM
  7. VITAMIN B COMPLEX [Concomitant]
     Active Substance: CYANOCOBALAMIN\DEXPANTHENOL\NIACINAMIDE\PYRIDOXINE HYDROCHLORIDE\RIBOFLAVIN 5^-PHOSPHATE SODIUM\THIAMINE HYDROCHLORIDE\VITAMIN B COMPLEX
  8. CURCUMIN [Concomitant]
     Active Substance: CURCUMIN
  9. VITAMIN C [Concomitant]
     Active Substance: ASCORBIC ACID
  10. VITAMIN K [Concomitant]
     Active Substance: PHYTONADIONE
  11. CALCIUM [Concomitant]
     Active Substance: CALCIUM
  12. MULTIVITAMINS [Concomitant]
     Active Substance: VITAMINS
  13. VERZENIO [Suspect]
     Active Substance: ABEMACICLIB
     Indication: BREAST CANCER
     Route: 048
     Dates: start: 20210708
  14. VITAMIN D [Concomitant]
     Active Substance: VITAMIN D NOS
  15. TRYPTOPHAN [Concomitant]
     Active Substance: TRYPTOPHAN
  16. SELENIUM [Concomitant]
     Active Substance: SELENIUM
  17. ZINC. [Concomitant]
     Active Substance: ZINC
  18. COLLAGEN [Concomitant]
     Active Substance: COLLAGEN
  19. BONE UP [Concomitant]
  20. LETROZOLE. [Concomitant]
     Active Substance: LETROZOLE

REACTIONS (4)
  - Diarrhoea [None]
  - Therapy interrupted [None]
  - Muscle spasms [None]
  - White blood cell count decreased [None]
